FAERS Safety Report 20642721 (Version 1)
Quarter: 2022Q1

REPORT INFORMATION
  Report Type: Spontaneous
  Country: US (occurrence: None)
  Receive Date: 20220325
  Receipt Date: 20220325
  Transmission Date: 20220423
  Serious: Yes (Death)
  Sender: FDA-Public Use
  Company Number: None

PATIENT
  Age: 77 Year
  Sex: Male

DRUGS (1)
  1. ESBRIET [Suspect]
     Active Substance: PIRFENIDONE
     Indication: Idiopathic pulmonary fibrosis
     Dosage: ?TAKE 3 TABLETS BY MOUTH THREE TIMES DAILY WITH FOOD
     Route: 048
     Dates: start: 20220126, end: 20220306

REACTIONS (1)
  - Death [None]

NARRATIVE: CASE EVENT DATE: 20220306
